FAERS Safety Report 8499759 (Version 2)
Quarter: 2013Q2

REPORT INFORMATION
  Report Type: Report from Study
  Country: US (occurrence: US)
  Receive Date: 20120409
  Receipt Date: 20130620
  Transmission Date: 20140414
  Serious: Yes (Life-Threatening, Hospitalization)
  Sender: FDA-Public Use
  Company Number: US-ELI_LILLY_AND_COMPANY-US201201001736

PATIENT
  Age: 83 Year
  Sex: Female

DRUGS (13)
  1. TERIPARATIDE [Suspect]
     Indication: OSTEOPOROSIS
     Dosage: 20 UG, QD
     Dates: start: 201112
  2. TERIPARATIDE [Suspect]
     Dosage: 20 UG, QD
  3. TERIPARATIDE [Suspect]
     Dosage: 20 UG, QD
     Dates: start: 201112
  4. LEVOTHYROXINE [Concomitant]
     Dosage: 25 MG, EACH MORNING
  5. FUROSEMIDE [Concomitant]
     Dosage: DAILY, PRN
  6. SODIUM CHLORIDE [Concomitant]
     Dosage: 1 G, QD
  7. METOPROLOL [Concomitant]
     Dosage: UNK, QD
  8. LOSARTAN [Concomitant]
     Dosage: UNK, QD
  9. ASPIRIN [Concomitant]
     Dosage: UNK, QD
  10. CALCIUM [Concomitant]
     Dosage: UNK, QD
  11. FISH OIL [Concomitant]
     Dosage: UNK, QD
  12. VITAMIN D [Concomitant]
     Dosage: UNK, QD
  13. POTASSIUM [Concomitant]
     Dosage: UNK, QD

REACTIONS (4)
  - Anaesthetic complication [Recovered/Resolved]
  - Back disorder [Unknown]
  - Drug dose omission [Unknown]
  - Muscle spasms [Unknown]
